FAERS Safety Report 6070260-2 (Version None)
Quarter: 2009Q1

REPORT INFORMATION
  Report Type: 
  Country: None (occurrence: None)
  Receive Date: 20090209
  Receipt Date: 20090203
  Transmission Date: 20090719
  Serious: Yes (Other)
  Sender: FDA-Public Use
  Company Number: PHHO2008FR09235

PATIENT
  Sex: Female
  Weight: 64 kg

DRUGS (4)
  1. CGS 20267 T30748+TAB [Suspect]
     Indication: BREAST CANCER
     Dosage: 2.5 MG, QD
     Route: 048
     Dates: start: 20050712, end: 20080724
  2. CALCIUM [Concomitant]
  3. VITAMIN D [Concomitant]
  4. TAHOR [Concomitant]
     Indication: HYPERCHOLESTEROLAEMIA

REACTIONS (2)
  - AMNESIA [None]
  - DEMENTIA [None]
